FAERS Safety Report 4513440-7 (Version None)
Quarter: 2004Q4

REPORT INFORMATION
  Report Type: 
  Country: None (occurrence: None)
  Receive Date: 20041130
  Receipt Date: 20041012
  Transmission Date: 20050328
  Serious: No
  Sender: FDA-Public Use
  Company Number: US-BRISTOL-MYERS SQUIBB COMPANY-12729240

PATIENT
  Sex: Female

DRUGS (2)
  1. ERBITUX [Suspect]
     Indication: PANCREATIC CARCINOMA
     Dosage: INITIAL INFUSION APPROX. I MO. AGO, THEN 2 WK BREAK, RECHALLENGED 1 WK AGO, D/C
     Route: 042
     Dates: start: 20040901, end: 20040901
  2. GEMZAR [Concomitant]
     Dates: start: 20040901, end: 20040901

REACTIONS (1)
  - CELLULITIS [None]
